FAERS Safety Report 14640391 (Version 1)
Quarter: 2018Q1

REPORT INFORMATION
  Report Type: Spontaneous
  Country: US (occurrence: US)
  Receive Date: 20180314
  Receipt Date: 20180314
  Transmission Date: 20180509
  Serious: Yes (Hospitalization)
  Sender: FDA-Public Use
  Company Number: None

PATIENT
  Age: 48 Year
  Sex: Male

DRUGS (8)
  1. LETAIRIS [Suspect]
     Active Substance: AMBRISENTAN
     Indication: PULMONARY ARTERIAL HYPERTENSION
     Route: 048
     Dates: start: 201708
  2. K-TAB [Concomitant]
     Active Substance: POTASSIUM CHLORIDE
  3. COZAAR [Concomitant]
     Active Substance: LOSARTAN POTASSIUM
  4. NORCO [Concomitant]
     Active Substance: ACETAMINOPHEN\HYDROCODONE BITARTRATE
  5. LASIX [Concomitant]
     Active Substance: FUROSEMIDE
  6. CONDYLOX [Concomitant]
     Active Substance: PODOFILOX
  7. REVATIO [Concomitant]
     Active Substance: SILDENAFIL CITRATE
  8. COREG [Concomitant]
     Active Substance: CARVEDILOL

REACTIONS (3)
  - Peripheral swelling [None]
  - Skin discolouration [None]
  - Oedema peripheral [None]

NARRATIVE: CASE EVENT DATE: 20180310
